FAERS Safety Report 4655176-8 (Version None)
Quarter: 2005Q2

REPORT INFORMATION
  Report Type: 
  Country: None (occurrence: None)
  Receive Date: 20050506
  Receipt Date: 20050426
  Transmission Date: 20051028
  Serious: Yes (Hospitalization)
  Sender: FDA-Public Use
  Company Number: US-GLAXOSMITHKLINE-A0555811A

PATIENT
  Age: 72 Year
  Sex: Female

DRUGS (13)
  1. ADVAIR DISKUS 100/50 [Suspect]
     Indication: CHRONIC OBSTRUCTIVE PULMONARY DISEASE
  2. ALBUTEROL [Concomitant]
  3. SPIRIVA [Concomitant]
  4. NORVASC [Concomitant]
  5. LOPRESSOR [Concomitant]
  6. HYDROCHLOROTHIAZIDE [Concomitant]
  7. LEVOXYL [Concomitant]
  8. ESTRACE [Concomitant]
  9. VITAMIN [Concomitant]
  10. VIT E [Concomitant]
  11. VIT C [Concomitant]
  12. VIT D [Concomitant]
  13. CALCIUM GLUCONATE [Concomitant]

REACTIONS (5)
  - ARTHROPATHY [None]
  - BRONCHIAL INFECTION [None]
  - CHRONIC OBSTRUCTIVE AIRWAYS DISEASE EXACERBATED [None]
  - ECCHYMOSIS [None]
  - ILL-DEFINED DISORDER [None]
